FAERS Safety Report 24188149 (Version 1)
Quarter: 2024Q3

REPORT INFORMATION
  Report Type: Spontaneous
  Country: US (occurrence: US)
  Receive Date: 20240808
  Receipt Date: 20240808
  Transmission Date: 20241016
  Serious: Yes (Life-Threatening, Hospitalization)
  Sender: Steriscience PTE
  Company Number: US-STERISCIENCE B.V.-2024-ST-001144

PATIENT
  Age: 15 Year
  Sex: Male

DRUGS (7)
  1. ACETYLCYSTEINE [Suspect]
     Active Substance: ACETYLCYSTEINE
     Indication: Overdose
     Dosage: UNK
     Route: 065
  2. ACETYLCYSTEINE [Suspect]
     Active Substance: ACETYLCYSTEINE
     Dosage: DOUBLED
     Route: 065
  3. ACETYLCYSTEINE [Suspect]
     Active Substance: ACETYLCYSTEINE
     Dosage: UNK
     Route: 065
  4. CHARCOAL [Suspect]
     Active Substance: ACTIVATED CHARCOAL
     Indication: Overdose
     Dosage: UNK
     Route: 065
  5. FOMEPIZOLE [Concomitant]
     Active Substance: FOMEPIZOLE
     Indication: Overdose
     Dosage: UNK
     Route: 065
  6. FOMEPIZOLE [Concomitant]
     Active Substance: FOMEPIZOLE
     Dosage: UNK
     Route: 065
  7. ACETAMINOPHEN [Concomitant]
     Active Substance: ACETAMINOPHEN
     Indication: Product used for unknown indication
     Dosage: INGESTING APPROXIMATELY 195G OF EXTENDED RELEASED PARACETAMOL
     Route: 065

REACTIONS (4)
  - Blood lactic acid increased [Unknown]
  - Mental status changes [None]
  - Drug level increased [None]
  - Drug ineffective [Unknown]
